FAERS Safety Report 6004006-0 (Version None)
Quarter: 2008Q4

REPORT INFORMATION
  Report Type: 
  Country: None (occurrence: None)
  Receive Date: 20081215
  Receipt Date: 20081215
  Transmission Date: 20090506
  Serious: Yes (Other)
  Sender: FDA-Public Use
  Company Number: None

PATIENT
  Sex: Female
  Weight: 48.5349 kg

DRUGS (2)
  1. PLAN B [Suspect]
     Indication: CONTRACEPTION
     Dosage: AS INDICATED ON PACKAGE PRN PO
     Route: 048
     Dates: start: 20080601, end: 20080601
  2. PLAN B [Suspect]
     Indication: CONTRACEPTION
     Dosage: AS INDICATED ON PACKAGE PRN PO
     Route: 048
     Dates: start: 20080607, end: 20080607

REACTIONS (2)
  - DRUG EXPOSURE DURING PREGNANCY [None]
  - PREGNANCY AFTER POST COITAL CONTRACEPTION [None]
